FAERS Safety Report 4840619-7 (Version None)
Quarter: 2005Q4

REPORT INFORMATION
  Report Type: 
  Country: None (occurrence: None)
  Receive Date: 20051129
  Receipt Date: 20051129
  Transmission Date: 20060501
  Serious: Yes (Other)
  Sender: FDA-Public Use
  Company Number: None

PATIENT

DRUGS (1)
  1. SUDAFED PE 10 MG LNK INTERNATIONAL [Suspect]
     Indication: RESPIRATORY DISORDER
     Dosage: 10 MG PO
     Route: 048

REACTIONS (1)
  - MEDICATION ERROR [None]
